FAERS Safety Report 13741902 (Version 1)
Quarter: 2017Q3

REPORT INFORMATION
  Report Type: Spontaneous
  Country: GB (occurrence: GB)
  Receive Date: 20170711
  Receipt Date: 20170711
  Transmission Date: 20171127
  Serious: Yes (Hospitalization)
  Sender: FDA-Public Use
  Company Number: GB-009507513-1707GBR000702

PATIENT
  Age: 77 Year
  Sex: Male

DRUGS (2)
  1. CYCLOSPORINE. [Interacting]
     Active Substance: CYCLOSPORINE
     Dosage: UNK
     Dates: start: 20170103
  2. SIMVASTATIN. [Suspect]
     Active Substance: SIMVASTATIN
     Dates: start: 20170103

REACTIONS (2)
  - Labelled drug-drug interaction medication error [Unknown]
  - Myopathy [Unknown]

NARRATIVE: CASE EVENT DATE: 20170224
